FAERS Safety Report 4835750-6 (Version None)
Quarter: 2005Q4

REPORT INFORMATION
  Report Type: 
  Country: None (occurrence: None)
  Receive Date: 20051118
  Receipt Date: 20051102
  Transmission Date: 20060501
  Serious: Yes (Other)
  Sender: FDA-Public Use
  Company Number: 002#2#2005-00339

PATIENT
  Age: 5 Year
  Sex: Male
  Weight: 22.6799 kg

DRUGS (2)
  1. GLYCOLAX [Suspect]
     Indication: CONSTIPATION
     Dosage: 17G, 1 IN 1 D, ORAL
     Route: 048
     Dates: start: 20040101, end: 20051101
  2. COUGH-MEDICINE [Suspect]
     Indication: COUGH
     Dosage: 1 ONCE, ORAL
     Route: 048
     Dates: start: 20051023, end: 20051023

REACTIONS (8)
  - BLOOD KETONE BODY INCREASED [None]
  - CONVULSION [None]
  - COUGH [None]
  - DRUG INEFFECTIVE [None]
  - IRRITABILITY [None]
  - MALAISE [None]
  - ORAL INTAKE REDUCED [None]
  - PYREXIA [None]
